FAERS Safety Report 4590424-4 (Version None)
Quarter: 2005Q1

REPORT INFORMATION
  Report Type: 
  Country: None (occurrence: None)
  Receive Date: 20050224
  Receipt Date: 20050126
  Transmission Date: 20050727
  Serious: Yes (Death, Hospitalization, Other)
  Sender: FDA-Public Use
  Company Number: PHBS2005JP01451

PATIENT
  Age: 29 Year
  Sex: Female
  Weight: 48 kg

DRUGS (11)
  1. TEGRETOL [Suspect]
     Dosage: 200 MG, BID
     Route: 048
     Dates: start: 20031010, end: 20031017
  2. ALEVIATIN [Suspect]
     Dosage: 300 MG/DAY
     Route: 048
     Dates: start: 20030923, end: 20031011
  3. ALEVIATIN [Suspect]
     Dosage: 250 MG/DAY
     Route: 042
     Dates: start: 20030923, end: 20031011
  4. DASEN [Concomitant]
     Dosage: 30 MG/DAY
     Route: 048
     Dates: start: 20031009, end: 20031014
  5. GASTER D [Concomitant]
     Dosage: 40 MG/DAY
     Route: 048
     Dates: start: 20030923
  6. MAGNESIUM OXIDE [Concomitant]
     Dosage: 2 G/DAY
     Route: 048
     Dates: start: 20030927, end: 20031015
  7. PL GRAN. [Concomitant]
     Dosage: 3 G/DAY
     Route: 048
     Dates: start: 20031009, end: 20031014
  8. CEFAMEZIN [Concomitant]
     Dosage: 2 G/DAY
     Route: 042
     Dates: start: 20031009, end: 20031015
  9. ANCER [Concomitant]
     Dosage: 1 DF
     Route: 042
     Dates: start: 20031010, end: 20031014
  10. PRIMPERAN TAB [Concomitant]
     Dosage: 1 DF
     Route: 042
     Dates: start: 20030924, end: 20031020
  11. GLYCEOL [Concomitant]
     Dosage: 400 ML/DAY
     Route: 042
     Dates: start: 20030923, end: 20031007

REACTIONS (20)
  - ALANINE AMINOTRANSFERASE INCREASED [None]
  - ASPARTATE AMINOTRANSFERASE INCREASED [None]
  - BLOOD ALKALINE PHOSPHATASE INCREASED [None]
  - BLOOD LACTATE DEHYDROGENASE INCREASED [None]
  - CEREBROVASCULAR OPERATION [None]
  - DERMATITIS EXFOLIATIVE [None]
  - DRUG HYPERSENSITIVITY [None]
  - EOSINOPHIL COUNT INCREASED [None]
  - ERYTHEMA [None]
  - GAMMA-GLUTAMYLTRANSFERASE INCREASED [None]
  - GLIOBLASTOMA [None]
  - HUMAN HERPES VIRUS 6 SEROLOGY POSITIVE [None]
  - LYMPHADENOPATHY [None]
  - LYMPHOCYTE MORPHOLOGY ABNORMAL [None]
  - LYMPHOCYTE STIMULATION TEST POSITIVE [None]
  - OEDEMA [None]
  - PYREXIA [None]
  - RASH [None]
  - RASH PAPULAR [None]
  - WHITE BLOOD CELL COUNT INCREASED [None]
